FAERS Safety Report 5854734-2 (Version None)
Quarter: 2008Q3

REPORT INFORMATION
  Report Type: 
  Country: None (occurrence: None)
  Receive Date: 20080822
  Receipt Date: 20071203
  Transmission Date: 20090109
  Serious: No
  Sender: FDA-Public Use
  Company Number: US-ABBOTT-07P-163-0427502-00

PATIENT
  Sex: Female
  Weight: 61.29 kg

DRUGS (2)
  1. SYNTHROID [Suspect]
     Indication: HORMONE REPLACEMENT THERAPY
     Route: 048
     Dates: start: 20060101, end: 20070101
  2. SYNTHROID [Suspect]
     Route: 048
     Dates: start: 20070101

REACTIONS (2)
  - DRY SKIN [None]
  - UNEVALUABLE EVENT [None]
